FAERS Safety Report 5007594-6 (Version None)
Quarter: 2006Q2

REPORT INFORMATION
  Report Type: 
  Country: None (occurrence: None)
  Receive Date: 20060522
  Receipt Date: 20060508
  Transmission Date: 20061013
  Serious: Yes (Disabling, Other)
  Sender: FDA-Public Use
  Company Number: 2006AC00931

PATIENT
  Age: 55 Year
  Sex: Male

DRUGS (1)
  1. ROSUVASTATIN [Suspect]
     Route: 048

REACTIONS (1)
  - MYASTHENIA GRAVIS [None]
